FAERS Safety Report 18633701 (Version 1)
Quarter: 2020Q4

REPORT INFORMATION
  Report Type: Spontaneous
  Country: JP (occurrence: JP)
  Receive Date: 20201218
  Receipt Date: 20201218
  Transmission Date: 20210114
  Serious: Yes (Hospitalization, Other)
  Sender: FDA-Public Use
  Company Number: JP-SUNOVION-2020DSP015954

PATIENT
  Age: 54 Year
  Sex: Female
  Weight: 58.2 kg

DRUGS (8)
  1. NEXIUM [Concomitant]
     Active Substance: ESOMEPRAZOLE MAGNESIUM
     Dosage: 10 MG, QD
     Route: 065
  2. RIVOTRIL [Concomitant]
     Active Substance: CLONAZEPAM
     Dosage: 1.5 MG, QD
     Route: 065
  3. SYCREST [Suspect]
     Active Substance: ASENAPINE MALEATE
     Indication: RESTLESSNESS
     Dosage: 5 MG, AS NECESSARY
     Route: 060
     Dates: start: 20201016, end: 20201016
  4. LAMICTAL [Concomitant]
     Active Substance: LAMOTRIGINE
     Dosage: 50 MG, QD
     Route: 065
  5. LATUDA [Suspect]
     Active Substance: LURASIDONE HYDROCHLORIDE
     Indication: SCHIZOPHRENIA
     Dosage: 40 MG, QD
     Route: 048
     Dates: start: 20201009
  6. LONASEN [Concomitant]
     Active Substance: BLONANSERIN
     Dosage: 12 MG, BID
     Route: 065
  7. LATUDA [Suspect]
     Active Substance: LURASIDONE HYDROCHLORIDE
     Dosage: 80 MG, QD
     Route: 048
     Dates: start: 20201012
  8. LONASEN [Concomitant]
     Active Substance: BLONANSERIN
     Dosage: 8 MG, BID
     Route: 065
     Dates: start: 20201012

REACTIONS (3)
  - Blood pressure decreased [Unknown]
  - Sinus bradycardia [Recovered/Resolved]
  - Loss of consciousness [Recovered/Resolved]

NARRATIVE: CASE EVENT DATE: 20201017
